FAERS Safety Report 18287652 (Version 4)
Quarter: 2021Q1

REPORT INFORMATION
  Report Type: Report from Study
  Country: IT (occurrence: IT)
  Receive Date: 20200921
  Receipt Date: 20210101
  Transmission Date: 20210419
  Serious: Yes (Hospitalization, Other)
  Sender: FDA-Public Use
  Company Number: IT-ACCORD-198360

PATIENT
  Age: 93 Year
  Sex: Male

DRUGS (8)
  1. MITTOVAL [Suspect]
     Active Substance: ALFUZOSIN HYDROCHLORIDE
     Route: 048
     Dates: start: 20200707, end: 20200707
  2. DUTASTERIDE. [Suspect]
     Active Substance: DUTASTERIDE
     Dates: start: 20200707, end: 20200707
  3. OXYBUTYNIN. [Suspect]
     Active Substance: OXYBUTYNIN CHLORIDE
     Dosage: 45 MG, TOTAL
     Route: 048
     Dates: start: 20200707, end: 20200707
  4. LEVOPRAID (LEVOSULPIRIDE) [Suspect]
     Active Substance: LEVOSULPIRIDE
     Dosage: STRENGTH: 25 MG TABLETS
     Dates: start: 20200707, end: 20200707
  5. FOLINIC ACID [Suspect]
     Active Substance: LEUCOVORIN
     Dates: start: 20200707, end: 20200707
  6. XARELTO [Suspect]
     Active Substance: RIVAROXABAN
     Dosage: STRENGTH: 15 MG
     Dates: start: 20200707, end: 20200707
  7. LASIX [Suspect]
     Active Substance: FUROSEMIDE
     Dosage: STRENGTH: 25 MG
     Route: 065
     Dates: start: 20200707, end: 20200707
  8. PANTOPRAZOLE [Suspect]
     Active Substance: PANTOPRAZOLE
     Dates: start: 20200707, end: 20200707

REACTIONS (3)
  - Intentional overdose [Unknown]
  - Disorganised speech [Not Recovered/Not Resolved]
  - Drug abuse [Unknown]

NARRATIVE: CASE EVENT DATE: 20200707
